FAERS Safety Report 12631942 (Version 2)
Quarter: 2016Q3

REPORT INFORMATION
  Report Type: Spontaneous
  Country: US (occurrence: US)
  Receive Date: 20160808
  Receipt Date: 20160808
  Transmission Date: 20161109
  Serious: No
  Sender: FDA-Public Use
  Company Number: US-BEH-2016061471

PATIENT
  Age: 13 Year
  Sex: Female
  Weight: 48 kg

DRUGS (23)
  1. LOVENOX [Concomitant]
     Active Substance: ENOXAPARIN SODIUM
  2. GLYCOPYRROLATE. [Concomitant]
     Active Substance: GLYCOPYRROLATE
  3. NEXIUM [Concomitant]
     Active Substance: ESOMEPRAZOLE MAGNESIUM
  4. KEPPRA [Concomitant]
     Active Substance: LEVETIRACETAM
  5. DIPHENHYDRAMINE. [Concomitant]
     Active Substance: DIPHENHYDRAMINE
  6. L-M-X [Concomitant]
  7. MIRALAX [Concomitant]
     Active Substance: POLYETHYLENE GLYCOL 3350
  8. EPIPEN [Concomitant]
     Active Substance: EPINEPHRINE
  9. BANZEL [Concomitant]
     Active Substance: RUFINAMIDE
  10. LEVOCETIRIZINE [Concomitant]
     Active Substance: LEVOCETIRIZINE
  11. DIASTAT [Concomitant]
     Active Substance: DIAZEPAM
  12. KLONOPIN [Concomitant]
     Active Substance: CLONAZEPAM
  13. LORAZEPAM. [Concomitant]
     Active Substance: LORAZEPAM
  14. CETIRIZINE [Concomitant]
     Active Substance: CETIRIZINE HYDROCHLORIDE
  15. DIMETAPP [Concomitant]
     Active Substance: BROMPHENIRAMINE\PSEUDOEPHEDRINE
  16. HIZENTRA [Suspect]
     Active Substance: HUMAN IMMUNOGLOBULIN G
     Indication: IMMUNODEFICIENCY COMMON VARIABLE
     Route: 058
  17. BUSPIRONE [Concomitant]
     Active Substance: BUSPIRONE HYDROCHLORIDE
  18. LORTAB [Concomitant]
     Active Substance: ACETAMINOPHEN\HYDROCODONE BITARTRATE
  19. CALCIUM CARB [Concomitant]
  20. NEURONTIN [Concomitant]
     Active Substance: GABAPENTIN
  21. PHENOBARBITAL. [Concomitant]
     Active Substance: PHENOBARBITAL
  22. DIAZEPAM. [Concomitant]
     Active Substance: DIAZEPAM
  23. ROXICET [Concomitant]
     Active Substance: ACETAMINOPHEN\OXYCODONE HYDROCHLORIDE

REACTIONS (1)
  - Gastroenteritis viral [Unknown]

NARRATIVE: CASE EVENT DATE: 201512
